FAERS Safety Report 4317469-3 (Version None)
Quarter: 2004Q1

REPORT INFORMATION
  Report Type: 
  Country: None (occurrence: None)
  Receive Date: 20040312
  Receipt Date: 20040226
  Transmission Date: 20041129
  Serious: Yes (Other)
  Sender: FDA-Public Use
  Company Number: DSK-2004-01696

PATIENT
  Age: 8 Year
  Sex: Male

DRUGS (3)
  1. TARIVID OTIC SOLUTION [Suspect]
     Indication: EAR INFECTION
     Dosage: AURICULAR
     Route: 001
     Dates: start: 20040205
  2. ORELOX (CEFPODOXIME PROXETIL) (CEFPODOXIME PROXETIL) [Suspect]
     Dates: start: 20040208, end: 20040216
  3. AUGMENTIN (CLAVULIN) (CLABULANA TE POTASSIUM, AMOXICILLIN TRIHYDRATE) [Concomitant]

REACTIONS (13)
  - ANOREXIA [None]
  - BALANCE DISORDER [None]
  - DIARRHOEA [None]
  - DIPLOPIA [None]
  - GASTROINTESTINAL DISORDER [None]
  - HEADACHE [None]
  - HEMIANOPIA HETERONYMOUS [None]
  - MULTIPLE SCLEROSIS [None]
  - PARAESTHESIA [None]
  - RETINAL OEDEMA [None]
  - VISUAL FIELD DEFECT [None]
  - VITH NERVE PARALYSIS [None]
  - VOMITING [None]
